FAERS Safety Report 4407616-7 (Version None)
Quarter: 2004Q3

REPORT INFORMATION
  Report Type: 
  Country: None (occurrence: None)
  Receive Date: 20040721
  Receipt Date: 20040707
  Transmission Date: 20050211
  Serious: Yes (Life-Threatening)
  Sender: FDA-Public Use
  Company Number: 6009600

PATIENT
  Age: 80 Year
  Sex: Female

DRUGS (3)
  1. EMCORETIC (HYDROCHLOROTHIAZIDE, BISOPROLOL FUMARATE) [Suspect]
     Indication: ESSENTIAL HYPERTENSION
     Dosage: 10 MG ORAL
     Route: 048
     Dates: start: 20030225, end: 20040528
  2. SERC [Concomitant]
  3. LEVOTHROID [Concomitant]

REACTIONS (1)
  - THROMBOCYTOPENIC PURPURA [None]
